FAERS Safety Report 15958139 (Version 3)
Quarter: 2019Q1

REPORT INFORMATION
  Report Type: Report from Study
  Country: US (occurrence: US)
  Receive Date: 20190213
  Receipt Date: 20190222
  Transmission Date: 20190417
  Serious: Yes (Life-Threatening, Hospitalization, Other)
  Sender: FDA-Public Use
  Company Number: US-OTSUKA-2019_004134

PATIENT
  Sex: Female

DRUGS (6)
  1. TOLVAPTAN [Suspect]
     Active Substance: TOLVAPTAN
     Dosage: 15 MG, BIW
     Route: 065
  2. TOLVAPTAN [Suspect]
     Active Substance: TOLVAPTAN
     Indication: BLOOD SODIUM DECREASED
     Dosage: (? A PILL THREE TIMES A WEEK BY SPLITTING THE TABLET), TIW
     Route: 065
  3. TOLVAPTAN [Suspect]
     Active Substance: TOLVAPTAN
     Dosage: 15 MG, TIW
     Route: 065
  4. SODIUM [Suspect]
     Active Substance: SODIUM
     Dosage: UNK
     Route: 065
  5. TOLVAPTAN [Suspect]
     Active Substance: TOLVAPTAN
     Dosage: 15 MG, QD
     Route: 065
  6. SODIUM [Suspect]
     Active Substance: SODIUM
     Indication: HYPONATRAEMIA
     Dosage: 3 MG, QD
     Route: 065

REACTIONS (10)
  - Blood sodium decreased [Not Recovered/Not Resolved]
  - Inappropriate schedule of product administration [Unknown]
  - Critical illness [Recovered/Resolved]
  - Immune system disorder [Not Recovered/Not Resolved]
  - Myocardial infarction [Recovered/Resolved]
  - Hyperosmolar state [Unknown]
  - Wrong technique in product usage process [Unknown]
  - Diabetes mellitus [Not Recovered/Not Resolved]
  - Hypoacusis [Not Recovered/Not Resolved]
  - Deafness neurosensory [Not Recovered/Not Resolved]

NARRATIVE: CASE EVENT DATE: 2018
